FAERS Safety Report 5478832-0 (Version None)
Quarter: 2007Q4

REPORT INFORMATION
  Report Type: 
  Country: None (occurrence: None)
  Receive Date: 20071002
  Receipt Date: 20070918
  Transmission Date: 20080405
  Serious: Yes (Hospitalization, Other)
  Sender: FDA-Public Use
  Company Number: 236416K07USA

PATIENT
  Age: 59 Year
  Sex: Female

DRUGS (9)
  1. REBIF [Suspect]
     Indication: MULTIPLE SCLEROSIS
     Dosage: 44 MCG, 3 IN 1 WEEKS, SUBCUTANEOUS
     Route: 058
     Dates: start: 20061120
  2. EVISTA [Concomitant]
  3. TRIAMTERENE                (TRIAMTERENE) [Concomitant]
  4. PROZAC [Concomitant]
  5. DETROL [Concomitant]
  6. GLUCOSAMINE CHONDROITIN SULFATE (JOINT FOOD) [Concomitant]
  7. FISH OIL    (FISH OIL) [Concomitant]
  8. VITAMIN D [Concomitant]
  9. PRILOSEC [Concomitant]

REACTIONS (6)
  - ARTHRALGIA [None]
  - ASTHENIA [None]
  - CHONDROPATHY [None]
  - EXOSTOSIS [None]
  - FEELING ABNORMAL [None]
  - JOINT DISLOCATION [None]
